FAERS Safety Report 7202764-0 (Version None)
Quarter: 2010Q4

REPORT INFORMATION
  Report Type: 
  Country: None (occurrence: None)
  Receive Date: 20101229
  Receipt Date: 20101221
  Transmission Date: 20110411
  Serious: Yes (Other)
  Sender: FDA-Public Use
  Company Number: JP-JNJFOC-20101004278

PATIENT
  Sex: Female

DRUGS (12)
  1. FINIBAX [Suspect]
     Indication: INFECTION PROPHYLAXIS
     Route: 041
  2. OMEPRAL [Concomitant]
     Indication: ULCER
     Route: 042
  3. PANTHENOL [Concomitant]
     Indication: ILEUS PARALYTIC
     Route: 042
  4. THYRADIN [Concomitant]
     Indication: HYPOTHYROIDISM
     Route: 048
  5. NORVASC [Concomitant]
     Indication: HYPERTENSION
     Route: 048
  6. ADALAT [Concomitant]
     Indication: HYPERTENSION
     Route: 048
  7. NI [Concomitant]
     Indication: GASTROINTESTINAL HYPERMOTILITY
     Route: 048
  8. VANCOMYCIN [Concomitant]
     Indication: PSEUDOMEMBRANOUS COLITIS
     Route: 048
  9. PROGRAF [Concomitant]
     Indication: IMMUNOSUPPRESSION
     Route: 048
  10. CELLCEPT [Concomitant]
     Indication: IMMUNOSUPPRESSION
     Route: 048
  11. MEDROL [Concomitant]
     Indication: IMMUNOSUPPRESSION
     Route: 048
  12. ALBUMIN (HUMAN) [Concomitant]
     Route: 065

REACTIONS (4)
  - CONVULSION [None]
  - EPILEPSY [None]
  - LOSS OF CONSCIOUSNESS [None]
  - OFF LABEL USE [None]
